FAERS Safety Report 5241444-8 (Version None)
Quarter: 2007Q1

REPORT INFORMATION
  Report Type: 
  Country: None (occurrence: None)
  Receive Date: 20070212
  Receipt Date: 20070130
  Transmission Date: 20070707
  Serious: Yes (Hospitalization)
  Sender: FDA-Public Use
  Company Number: 235820

PATIENT

DRUGS (1)
  1. RAPTIVA [Suspect]
     Indication: DRUG USE FOR UNKNOWN INDICATION

REACTIONS (4)
  - NO THERAPEUTIC RESPONSE [None]
  - ORAL FUNGAL INFECTION [None]
  - ORAL VIRAL INFECTION [None]
  - STOMATITIS [None]
